FAERS Safety Report 5991621-3 (Version None)
Quarter: 2008Q4

REPORT INFORMATION
  Report Type: 
  Country: None (occurrence: None)
  Receive Date: 20081211
  Receipt Date: 20081204
  Transmission Date: 20090506
  Serious: Yes (Life-Threatening)
  Sender: FDA-Public Use
  Company Number: JP-ABBOTT-08P-087-0491251-00

PATIENT
  Age: 76 Year
  Sex: Female
  Weight: 44 kg

DRUGS (12)
  1. SEVOFLURANE [Suspect]
     Indication: ANAESTHESIA PROCEDURE
     Dosage: 5%*10 MIN
     Route: 055
     Dates: start: 20071119, end: 20071119
  2. SEVOFLURANE [Suspect]
     Dosage: 1%*5MIN
     Route: 055
     Dates: start: 20071119, end: 20071119
  3. SEVOFLURANE [Suspect]
     Dosage: 0.6%*5MIN
     Route: 055
     Dates: start: 20071119, end: 20071119
  4. METHOXAMINE HYDROCHLORIDE [Suspect]
     Indication: ANAESTHESIA
     Route: 042
     Dates: start: 20071119, end: 20071119
  5. PROPOFOL [Concomitant]
     Indication: ANAESTHESIA PROCEDURE
     Route: 042
     Dates: start: 20071119, end: 20071119
  6. FENTANYL-100 [Concomitant]
     Indication: ANAESTHESIA PROCEDURE
     Route: 042
     Dates: start: 20071119, end: 20071119
  7. DICLOFENAC DIETHYLAMINE [Concomitant]
     Indication: ANALGESIA
     Route: 054
     Dates: start: 20071119, end: 20071119
  8. NEOSTIGMINE METILSULFATE [Concomitant]
     Indication: ANAESTHESIA REVERSAL
     Route: 042
     Dates: start: 20071119, end: 20071119
  9. NITROGLYCERIN [Concomitant]
     Indication: DRUG USE FOR UNKNOWN INDICATION
     Route: 062
     Dates: start: 20071119, end: 20071119
  10. HEPARIN SODIUM [Concomitant]
     Indication: DRUG USE FOR UNKNOWN INDICATION
     Dosage: 10000U/24H
     Dates: start: 20071119, end: 20071119
  11. VECRONIUM [Concomitant]
     Indication: ANAESTHESIA PROCEDURE
     Route: 042
     Dates: start: 20071119, end: 20071119
  12. ATROPINE SULFATE [Concomitant]
     Indication: ANAESTHESIA REVERSAL
     Route: 042
     Dates: start: 20071119, end: 20071119

REACTIONS (3)
  - ATRIAL FIBRILLATION [None]
  - PULSE ABSENT [None]
  - SUPRAVENTRICULAR TACHYCARDIA [None]
